FAERS Safety Report 21248735 (Version 4)
Quarter: 2023Q1

REPORT INFORMATION
  Report Type: Report from Study
  Country: MX (occurrence: MX)
  Receive Date: 20220824
  Receipt Date: 20230206
  Transmission Date: 20230418
  Serious: Yes (Hospitalization, Other)
  Sender: FDA-Public Use
  Company Number: MX-NOVARTISPH-NVSC2022MX111919

PATIENT
  Age: 62 Year
  Sex: Female

DRUGS (2)
  1. TASIGNA [Suspect]
     Active Substance: NILOTINIB
     Indication: Chronic myeloid leukaemia
     Dosage: UNK
     Route: 048
  2. TASIGNA [Suspect]
     Active Substance: NILOTINIB
     Dosage: 2 DOSAGE FORM, Q12H
     Route: 065

REACTIONS (34)
  - Chronic myeloid leukaemia recurrent [Recovering/Resolving]
  - Procedural pain [Not Recovered/Not Resolved]
  - Inappropriate schedule of product administration [Unknown]
  - Ill-defined disorder [Unknown]
  - Arthritis [Not Recovered/Not Resolved]
  - Bone pain [Unknown]
  - Abdominal discomfort [Unknown]
  - Gastritis [Unknown]
  - Abdominal pain upper [Recovering/Resolving]
  - Fatigue [Unknown]
  - Malaise [Not Recovered/Not Resolved]
  - Speech disorder [Not Recovered/Not Resolved]
  - Influenza [Not Recovered/Not Resolved]
  - Cough [Not Recovered/Not Resolved]
  - Blood cholesterol abnormal [Unknown]
  - Rheumatic disorder [Unknown]
  - Stress [Recovered/Resolved]
  - Anger [Recovered/Resolved]
  - COVID-19 [Unknown]
  - Memory impairment [Unknown]
  - Mood altered [Recovered/Resolved]
  - Limb discomfort [Unknown]
  - Dysphonia [Unknown]
  - Pain in extremity [Unknown]
  - Depression [Unknown]
  - Blood triglycerides abnormal [Unknown]
  - Blood uric acid abnormal [Not Recovered/Not Resolved]
  - Vertigo [Unknown]
  - Headache [Unknown]
  - Arthralgia [Unknown]
  - Decreased appetite [Unknown]
  - Weight decreased [Unknown]
  - Confusional state [Unknown]
  - Product availability issue [Unknown]

NARRATIVE: CASE EVENT DATE: 20220508
